FAERS Safety Report 4506945-6 (Version None)
Quarter: 2004Q4

REPORT INFORMATION
  Report Type: 
  Country: None (occurrence: None)
  Receive Date: 20041025
  Receipt Date: 20040723
  Transmission Date: 20050328
  Serious: Yes (Hospitalization)
  Sender: FDA-Public Use
  Company Number: US-JNJFOC-20040706704

PATIENT
  Age: 39 Year
  Sex: Female

DRUGS (6)
  1. INFLIXIMAB (INFLIXIMAB, RECOMBINANT) LYOPHILIZED POWDER [Suspect]
     Indication: RHEUMATOID ARTHRITIS
     Dosage: 400 MG, 1 IN 4 WEEK, INTRAVENOUS
     Route: 042
     Dates: start: 20010518, end: 20030801
  2. DIAZEPAM [Concomitant]
  3. MULTIVITAMIN (MULTIVITAMINS) [Concomitant]
  4. NAPROXEN [Concomitant]
  5. OXYCONTIN [Concomitant]
  6. AMBIEN [Concomitant]

REACTIONS (1)
  - NEPHROLITHIASIS [None]
